FAERS Safety Report 11817419 (Version 4)
Quarter: 2017Q1

REPORT INFORMATION
  Report Type: Spontaneous
  Country: US (occurrence: US)
  Receive Date: 20151210
  Receipt Date: 20170217
  Transmission Date: 20170428
  Serious: Yes (Other)
  Sender: FDA-Public Use
  Company Number: US-JNJFOC-20151107599

PATIENT
  Age: 18 Year
  Sex: Male

DRUGS (3)
  1. RISPERDAL [Suspect]
     Active Substance: RISPERIDONE
     Indication: ANGER
     Dosage: 1 MG TO 4.5 MG
     Route: 048
     Dates: start: 199809, end: 2003
  2. RISPERDAL [Suspect]
     Active Substance: RISPERIDONE
     Indication: HALLUCINATION
     Dosage: 1 MG TO 4.5 MG
     Route: 048
     Dates: start: 199809, end: 2003
  3. RISPERDAL [Suspect]
     Active Substance: RISPERIDONE
     Indication: PSYCHOTIC DISORDER
     Dosage: 1 MG TO 4.5 MG
     Route: 048
     Dates: start: 199809, end: 2003

REACTIONS (4)
  - Gynaecomastia [Unknown]
  - Restless legs syndrome [Unknown]
  - Drug effect decreased [Unknown]
  - Obesity [Unknown]

NARRATIVE: CASE EVENT DATE: 1998
